FAERS Safety Report 7295280-1 (Version None)
Quarter: 2011Q1

REPORT INFORMATION
  Report Type: 
  Country: None (occurrence: None)
  Receive Date: 20110211
  Receipt Date: 20110211
  Transmission Date: 20110831
  Serious: Yes (Disabling)
  Sender: FDA-Public Use
  Company Number: None

PATIENT
  Sex: Female
  Weight: 78.0187 kg

DRUGS (1)
  1. PROSED-DS 81.6-0.12 12-20.8 MG FERRING [Suspect]
     Indication: DYSURIA
     Dosage: 1 TABLET 3 X DAILY PO
     Route: 048
     Dates: start: 20110208, end: 20110209

REACTIONS (1)
  - RASH GENERALISED [None]
